FAERS Safety Report 19274852 (Version 1)
Quarter: 2021Q2

REPORT INFORMATION
  Report Type: Spontaneous
  Country: US (occurrence: US)
  Receive Date: 20210519
  Receipt Date: 20210519
  Transmission Date: 20210717
  Serious: No
  Sender: FDA-Public Use
  Company Number: US-TEVA-2021-US-1911208

PATIENT
  Sex: Female

DRUGS (1)
  1. BUPRENORPHINE HYDROCHLORIDE TEVA [Suspect]
     Active Substance: BUPRENORPHINE HYDROCHLORIDE
     Dosage: STRENGTH: 20 MCG / HR
     Route: 062

REACTIONS (3)
  - Application site erythema [Unknown]
  - Product adhesion issue [Unknown]
  - Application site rash [Unknown]
